FAERS Safety Report 6129960-8 (Version None)
Quarter: 2009Q1

REPORT INFORMATION
  Report Type: 
  Country: None (occurrence: None)
  Receive Date: 20090323
  Receipt Date: 20090323
  Transmission Date: 20090719
  Serious: No
  Sender: FDA-Public Use
  Company Number: None

PATIENT
  Age: 69 Year
  Sex: Female
  Weight: 83.9154 kg

DRUGS (2)
  1. NITROFURANTOIN [Suspect]
     Indication: BLADDER DISORDER
     Dosage: 1CAPSULE MON,WED,FRI PO
     Route: 048
     Dates: start: 20090227, end: 20090318
  2. NITROFURANTOIN [Suspect]
     Indication: KIDNEY INFECTION
     Dosage: 1CAPSULE MON,WED,FRI PO
     Route: 048
     Dates: start: 20090227, end: 20090318

REACTIONS (7)
  - CHILLS [None]
  - FATIGUE [None]
  - FEELING COLD [None]
  - HEADACHE [None]
  - MUSCLE SPASMS [None]
  - MYALGIA [None]
  - PYREXIA [None]
